FAERS Safety Report 5834432-1 (Version None)
Quarter: 2008Q3

REPORT INFORMATION
  Report Type: 
  Country: None (occurrence: None)
  Receive Date: 20080722
  Receipt Date: 20080206
  Transmission Date: 20090109
  Serious: Yes (Hospitalization)
  Sender: FDA-Public Use
  Company Number: 2008BI003350

PATIENT
  Age: 32 Year
  Sex: Female
  Weight: 53.978 kg

DRUGS (4)
  1. AVONEX [Suspect]
     Indication: MULTIPLE SCLEROSIS
     Dosage: 30 UG ; QW ; IM
     Route: 030
     Dates: start: 20061101, end: 20060101
  2. AVONEX [Suspect]
     Indication: MULTIPLE SCLEROSIS
     Dosage: 30 UG ; QW ; IM
     Route: 030
     Dates: start: 20080204, end: 20080204
  3. NEURONTIN [Concomitant]
  4. FIORICET [Concomitant]

REACTIONS (1)
  - MULTIPLE SCLEROSIS RELAPSE [None]
